FAERS Safety Report 4608745-5 (Version None)
Quarter: 2005Q1

REPORT INFORMATION
  Report Type: 
  Country: None (occurrence: None)
  Receive Date: 20050309
  Receipt Date: 20050216
  Transmission Date: 20050727
  Serious: Yes (Hospitalization)
  Sender: FDA-Public Use
  Company Number: EWC041141414

PATIENT
  Age: 70 Year
  Sex: Male
  Weight: 65 kg

DRUGS (3)
  1. FORTEO [Suspect]
     Indication: OSTEOPOROSIS
     Dosage: 20 UG/ 1 DAY
     Dates: start: 20040914, end: 20041108
  2. CALCIUM W/COLECALCIFEROL [Concomitant]
  3. ESAPENT (OMEGA-3 TRIGLYCERIDES) [Concomitant]

REACTIONS (3)
  - FACIAL BONES FRACTURE [None]
  - FALL [None]
  - SPINAL FRACTURE [None]
